FAERS Safety Report 4820536-9 (Version None)
Quarter: 2005Q4

REPORT INFORMATION
  Report Type: 
  Country: None (occurrence: None)
  Receive Date: 20051014
  Receipt Date: 20050903
  Transmission Date: 20060501
  Serious: No
  Sender: FDA-Public Use
  Company Number: 2005SP002675

PATIENT
  Age: 82 Year
  Sex: Female

DRUGS (1)
  1. LUNESTA [Suspect]
     Dosage: 2 MG; HS; ORAL
     Route: 048
     Dates: start: 20050903

REACTIONS (3)
  - ABDOMINAL PAIN [None]
  - HEADACHE [None]
  - SLEEP DISORDER [None]
